FAERS Safety Report 6522874-0 (Version None)
Quarter: 2009Q4

REPORT INFORMATION
  Report Type: 
  Country: None (occurrence: None)
  Receive Date: 20091230
  Receipt Date: 20091227
  Transmission Date: 20100525
  Serious: Yes (Death, Other)
  Sender: FDA-Public Use
  Company Number: DE-CELGENEUS-062-50794-09112133

PATIENT
  Age: 75 Year
  Sex: Female

DRUGS (3)
  1. VIDAZA [Suspect]
     Route: 058
     Dates: start: 20090509, end: 20091113
  2. VIDAZA [Suspect]
  3. GLIBENCLAMIDE [Concomitant]
     Indication: DIABETES MELLITUS
     Route: 048

REACTIONS (3)
  - DEATH [None]
  - PANCYTOPENIA [None]
  - PYREXIA [None]
